FAERS Safety Report 8605411-6 (Version None)
Quarter: 2012Q3

REPORT INFORMATION
  Report Type: 
  Country: None (occurrence: None)
  Receive Date: 20120807
  Receipt Date: 20120731
  Transmission Date: 20120928
  Serious: Yes (Death)
  Sender: FDA-Public Use
  Company Number: US-2012-11032

PATIENT
  Age: 49 Year
  Sex: Female

DRUGS (3)
  1. BUSULFEX [Suspect]
     Indication: BONE MARROW CONDITIONING REGIMEN
     Dosage: INTRAVENOUS
     Route: 042
  2. ALEMTUZUMAB (ALEMTUZUMAB) [Concomitant]
  3. FLUDARABINE PHOSPHATE [Concomitant]

REACTIONS (3)
  - VENOOCCLUSIVE DISEASE [None]
  - PULMONARY HAEMORRHAGE [None]
  - HEPATIC NECROSIS [None]
